FAERS Safety Report 19286522 (Version 1)
Quarter: 2021Q2

REPORT INFORMATION
  Report Type: Report from Study
  Country: None (occurrence: US)
  Receive Date: 20210522
  Receipt Date: 20210522
  Transmission Date: 20210717
  Serious: Yes (Other)
  Sender: FDA-Public Use
  Company Number: US-ABBVIE-21K-163-3914319-00

PATIENT
  Sex: Female

DRUGS (1)
  1. HUMIRA [Suspect]
     Active Substance: ADALIMUMAB
     Indication: PSORIASIS
     Dosage: CITRATE FREE
     Route: 058

REACTIONS (6)
  - Skin disorder [Not Recovered/Not Resolved]
  - Arthritis [Recovering/Resolving]
  - Loss of consciousness [Not Recovered/Not Resolved]
  - Head injury [Unknown]
  - Melanocytic naevus [Recovered/Resolved]
  - Psoriasis [Unknown]
